FAERS Safety Report 10346917 (Version 1)
Quarter: 2014Q3

REPORT INFORMATION
  Report Type: Spontaneous
  Country: US (occurrence: None)
  Receive Date: 20140725
  Receipt Date: 20140725
  Transmission Date: 20150326
  Serious: Yes (Other)
  Sender: FDA-Public Use
  Company Number: None

PATIENT
  Age: 61 Year
  Sex: Female
  Weight: 68.04 kg

DRUGS (1)
  1. EQUATE FIBER THERAPY [Suspect]
     Active Substance: CALCIUM POLYCARBOPHIL
     Indication: BLOOD CHOLESTEROL INCREASED
     Dosage: 6 DAILY
     Dates: start: 20130701, end: 20140721

REACTIONS (5)
  - Dyspepsia [None]
  - Mass [None]
  - Product solubility abnormal [None]
  - Gastrooesophageal reflux disease [None]
  - Product physical issue [None]

NARRATIVE: CASE EVENT DATE: 20140721
